APPROVED DRUG PRODUCT: KATERZIA
Active Ingredient: AMLODIPINE BENZOATE
Strength: EQ 1MG BASE/ML
Dosage Form/Route: SUSPENSION;ORAL
Application: N211340 | Product #001
Applicant: AZURITY PHARMACEUTICALS INC
Approved: Jul 8, 2019 | RLD: Yes | RS: Yes | Type: RX

PATENTS:
Patent 10959991 | Expires: Oct 6, 2037
Patent 10959991 | Expires: Oct 6, 2037
Patent 10894039 | Expires: Oct 6, 2037
Patent 10894039 | Expires: Oct 6, 2037
Patent 11471409 | Expires: Oct 6, 2037
Patent 11471409 | Expires: Oct 6, 2037
Patent 12336984 | Expires: Oct 6, 2037
Patent 12336984 | Expires: Oct 6, 2037
Patent 11918685 | Expires: Oct 6, 2037
Patent 11918685 | Expires: Oct 6, 2037
Patent 10799453 | Expires: Apr 11, 2039
Patent 11701326 | Expires: Oct 6, 2037
Patent 11484498 | Expires: Oct 6, 2037
Patent 10952998 | Expires: Oct 6, 2037
Patent 12383498 | Expires: Oct 6, 2037
Patent 10695329 | Expires: Oct 16, 2037
Patent 11364230 | Expires: Oct 6, 2037
Patent 12053461 | Expires: Oct 6, 2037